FAERS Safety Report 12091769 (Version 1)
Quarter: 2016Q1

REPORT INFORMATION
  Report Type: Spontaneous
  Country: CO (occurrence: CO)
  Receive Date: 20160218
  Receipt Date: 20160218
  Transmission Date: 20160526
  Serious: Yes (Hospitalization)
  Sender: FDA-Public Use
  Company Number: CO-BIOGEN-2015BI122238

PATIENT
  Age: 19 Year
  Sex: Female
  Weight: 47 kg

DRUGS (1)
  1. AVONEX [Suspect]
     Active Substance: INTERFERON BETA-1A
     Indication: PRODUCT USED FOR UNKNOWN INDICATION
     Route: 030
     Dates: start: 20150830

REACTIONS (5)
  - Vomiting [Unknown]
  - Multiple sclerosis [Unknown]
  - Paralysis [Not Recovered/Not Resolved]
  - Mobility decreased [Unknown]
  - Headache [Unknown]

NARRATIVE: CASE EVENT DATE: 20150830
